FAERS Safety Report 18808655 (Version 1)
Quarter: 2021Q1

REPORT INFORMATION
  Report Type: Report from Study
  Country: US (occurrence: US)
  Receive Date: 20210129
  Receipt Date: 20210129
  Transmission Date: 20210419
  Serious: Yes (Hospitalization, Other)
  Sender: FDA-Public Use
  Company Number: US-ASTELLAS-2020US023759

PATIENT
  Age: 83 Year
  Sex: Male

DRUGS (2)
  1. ENZALUTAMIDE [Suspect]
     Active Substance: ENZALUTAMIDE
     Indication: HORMONE-REFRACTORY PROSTATE CANCER
     Dosage: UNK UNK, UNKNOWN FREQ.
     Route: 048
     Dates: start: 20200128
  2. ENZALUTAMIDE [Suspect]
     Active Substance: ENZALUTAMIDE
     Route: 048

REACTIONS (5)
  - Malignant neoplasm progression [Not Recovered/Not Resolved]
  - Thrombosis [Unknown]
  - Product use complaint [Not Recovered/Not Resolved]
  - Prostate cancer [Unknown]
  - Product availability issue [Unknown]

NARRATIVE: CASE EVENT DATE: 20200615
